FAERS Safety Report 22939876 (Version 5)
Quarter: 2024Q1

REPORT INFORMATION
  Report Type: Report from Study
  Country: US (occurrence: US)
  Receive Date: 20230913
  Receipt Date: 20240219
  Transmission Date: 20240410
  Serious: Yes (Other)
  Sender: FDA-Public Use
  Company Number: US-ABBVIE-5331137

PATIENT
  Sex: Male
  Weight: 93.89 kg

DRUGS (14)
  1. VENCLEXTA [Suspect]
     Active Substance: VENETOCLAX
     Indication: Chronic lymphocytic leukaemia
     Route: 048
  2. VENCLEXTA [Suspect]
     Active Substance: VENETOCLAX
     Indication: Chronic lymphocytic leukaemia
     Route: 048
     Dates: start: 20230525, end: 20231026
  3. VENCLEXTA [Suspect]
     Active Substance: VENETOCLAX
     Indication: Chronic lymphocytic leukaemia
     Route: 048
  4. VENCLEXTA [Suspect]
     Active Substance: VENETOCLAX
     Indication: Chronic lymphocytic leukaemia
     Dosage: LAST ADMIN DATE: 2023
     Route: 048
     Dates: start: 202305
  5. VENCLEXTA [Suspect]
     Active Substance: VENETOCLAX
     Indication: Chronic lymphocytic leukaemia
     Route: 048
  6. GAZYVA [Concomitant]
     Active Substance: OBINUTUZUMAB
     Indication: Product used for unknown indication
     Dosage: INFUSE?1000 MG/40ML INJECTION
     Route: 042
     Dates: start: 20230601
  7. ZOFRAN [Concomitant]
     Active Substance: ONDANSETRON HYDROCHLORIDE
     Indication: Nausea
     Dosage: TAKE 1 TABLET (8 MG TOTAL) BY MOUTH EVERY 8 HOURS AS NEEDED FOR NAUSEA
     Dates: start: 20230420
  8. PEPCID [Concomitant]
     Active Substance: FAMOTIDINE
     Indication: Product used for unknown indication
     Dosage: TAKE 1 TABLET (40 MG TOTAL) BY MOUTH 2 TIMES DAILY PATIENT TAKES AS NEEDED
     Dates: start: 20211206
  9. TAMBOCOR [Concomitant]
     Active Substance: FLECAINIDE ACETATE
     Indication: Product used for unknown indication
     Dosage: TAKE 1 TABLET (100 MG TOTAL) BY MOUTH 2 TIMES DAILY
  10. PRILOSEC [Concomitant]
     Active Substance: OMEPRAZOLE MAGNESIUM
     Indication: Product used for unknown indication
     Dosage: TAKE 1 CAPSULE (20 MG TOTAL) BY MOUTH DAILY
     Route: 048
  11. XARELTO [Concomitant]
     Active Substance: RIVAROXABAN
     Indication: Product used for unknown indication
     Dosage: TAKE 1 TABLET  BY MOUTH EVERY EVENING
     Route: 048
     Dates: start: 20200106
  12. ULTRAM [Concomitant]
     Active Substance: TRAMADOL HYDROCHLORIDE
     Indication: Pain
     Dosage: TAKE 1 TABLET (50 MG TOTAL) BY MOUTH EVERY 12 HOURS AS NEEDED MAX DAILY AMOUNT: 100 MG?FORM STREN...
     Route: 048
     Dates: start: 20231121
  13. CARDIZEM CD [Concomitant]
     Active Substance: DILTIAZEM HYDROCHLORIDE
     Indication: Product used for unknown indication
     Dosage: TAKE 1 CAPSULE (180 MG TOTAL) BY MOUTH EVERY EVENING
     Route: 048
  14. FISH OIL\OMEGA-3 FATTY ACIDS [Concomitant]
     Active Substance: FISH OIL\OMEGA-3 FATTY ACIDS
     Indication: Product used for unknown indication
     Dosage: TAKE 1 CAPSULE (1,000 MG TOTAL) BY MOUTH DAILY IN THE MORNING?FORM STRENGTH 1000 MILLIGRAM?FREQUE...
     Route: 048

REACTIONS (19)
  - Ankle fracture [Recovered/Resolved]
  - Fall [Recovered/Resolved]
  - Blood bilirubin increased [Unknown]
  - Musculoskeletal pain [Not Recovered/Not Resolved]
  - Pain [Recovered/Resolved]
  - Neutropenia [Recovered/Resolved]
  - Blood immunoglobulin G decreased [Unknown]
  - Myalgia [Unknown]
  - Bronchitis [Unknown]
  - Lymphopenia [Unknown]
  - Pneumonia [Unknown]
  - Muscular weakness [Recovering/Resolving]
  - Muscular weakness [Unknown]
  - Joint instability [Unknown]
  - Sinusitis [Unknown]
  - COVID-19 [Recovered/Resolved]
  - COVID-19 [Unknown]
  - Bone pain [Unknown]
  - Infection [Unknown]

NARRATIVE: CASE EVENT DATE: 20230101
